FAERS Safety Report 24266780 (Version 4)
Quarter: 2024Q4

REPORT INFORMATION
  Report Type: Report from Study
  Country: US (occurrence: US)
  Receive Date: 20240830
  Receipt Date: 20241119
  Transmission Date: 20250114
  Serious: Yes (Other)
  Sender: ACADIA PHARMACEUTICALS
  Company Number: US-ACADIA PHARMACEUTICALS INC.-ACA-2024-PIM-004783

PATIENT
  Sex: Male

DRUGS (16)
  1. NUPLAZID [Suspect]
     Active Substance: PIMAVANSERIN TARTRATE
     Indication: Parkinson^s disease psychosis
     Dosage: 34 MILLIGRAM, QD
     Route: 048
     Dates: start: 20240712
  2. NUPLAZID [Suspect]
     Active Substance: PIMAVANSERIN TARTRATE
     Indication: Parkinson^s disease
  3. VITAMIN B12 [Concomitant]
     Active Substance: CYANOCOBALAMIN
     Dosage: 1000 CR
  4. COENZYME Q10 [Concomitant]
     Active Substance: DIETARY SUPPLEMENT\UBIDECARENONE
     Dosage: 100 MILLIGRAM
  5. DONEPEZIL [Concomitant]
     Active Substance: DONEPEZIL
     Dosage: 10 MILLIGRAM
  6. ELIQUIS [Concomitant]
     Active Substance: APIXABAN
     Dosage: 5 MILLIGRAM
  7. FISH OIL [Concomitant]
     Active Substance: FISH OIL
     Dosage: 1000 MILLIGRAM
  8. GLUCOSAMIN + CHONDROITIN [Concomitant]
  9. LIPITOR [Concomitant]
     Active Substance: ATORVASTATIN CALCIUM
     Dosage: 10 MILLIGRAM
  10. CALCIUM\MELATONIN\PYRIDOXINE HYDROCHLORIDE [Concomitant]
     Active Substance: CALCIUM\MELATONIN\PYRIDOXINE HYDROCHLORIDE
     Dosage: 10 MILLIGRAM
  11. VITAMINS NOS [Concomitant]
     Active Substance: VITAMINS
  12. POTASSIUM CHLORIDE [Concomitant]
     Active Substance: POTASSIUM CHLORIDE
     Dosage: 10MEQ ER
  13. RIVASTIGMINE [Concomitant]
     Active Substance: RIVASTIGMINE
     Dosage: 1.5MG
  14. RYTARY [Concomitant]
     Active Substance: CARBIDOPA\LEVODOPA
     Dosage: 95 MILLIGRAM
  15. HERBALS\TURMERIC [Concomitant]
     Active Substance: HERBALS\TURMERIC
     Dosage: 450 MILLIGRAM
  16. MIDODRINE [Concomitant]
     Active Substance: MIDODRINE
     Dosage: 2.5 MG

REACTIONS (6)
  - Seizure like phenomena [Unknown]
  - Blood pressure fluctuation [Unknown]
  - Urinary tract infection [Unknown]
  - Fluid intake reduced [Unknown]
  - Confusional state [Unknown]
  - Confusional state [Unknown]
